FAERS Safety Report 24408087 (Version 1)
Quarter: 2024Q4

REPORT INFORMATION
  Report Type: Spontaneous
  Country: US (occurrence: US)
  Receive Date: 20241007
  Receipt Date: 20241007
  Transmission Date: 20250115
  Serious: No
  Sender: BRISTOL MYERS SQUIBB
  Company Number: US-BRISTOL-MYERS SQUIBB COMPANY-2024-156010

PATIENT
  Age: 78 Year
  Sex: Male

DRUGS (1)
  1. REVLIMID [Suspect]
     Active Substance: LENALIDOMIDE
     Indication: Product used for unknown indication
     Route: 048
     Dates: start: 202409

REACTIONS (6)
  - Fatigue [Unknown]
  - Constipation [Unknown]
  - Infrequent bowel movements [Unknown]
  - Faeces hard [Unknown]
  - Pain [Unknown]
  - General physical health deterioration [Unknown]
